FAERS Safety Report 13984204 (Version 7)
Quarter: 2018Q1

REPORT INFORMATION
  Report Type: Report from Study
  Country: FR (occurrence: FR)
  Receive Date: 20170918
  Receipt Date: 20180221
  Transmission Date: 20180508
  Serious: Yes (Life-Threatening, Hospitalization, Other)
  Sender: FDA-Public Use
  Company Number: FR-CELGENEUS-FRA-20170902943

PATIENT
  Age: 73 Year
  Sex: Male

DRUGS (27)
  1. OFLOCET [Concomitant]
     Active Substance: OFLOXACIN
     Indication: PYREXIA
     Dosage: 400 MILLIGRAM
     Route: 048
     Dates: start: 20170423, end: 20170503
  2. OXYNORMORO [Concomitant]
     Active Substance: OXYCODONE HYDROCHLORIDE
     Indication: MUCOSAL INFLAMMATION
     Route: 048
     Dates: start: 20170503, end: 20170907
  3. LORAZEPAM. [Concomitant]
     Active Substance: LORAZEPAM
     Indication: ANXIETY
     Dosage: 1 MILLIGRAM
     Route: 048
     Dates: start: 20170508
  4. AZACITIDINE. [Suspect]
     Active Substance: AZACITIDINE
     Indication: ACUTE MYELOID LEUKAEMIA
     Route: 058
     Dates: start: 20170406, end: 20170824
  5. MOVICOL [Concomitant]
     Active Substance: POLYETHYLENE GLYCOL 3350\POTASSIUM CHLORIDE\SODIUM BICARBONATE\SODIUM CHLORIDE
     Indication: CONSTIPATION PROPHYLAXIS
     Dosage: 1 DOSAGE FORMS
     Route: 048
     Dates: start: 20170411, end: 20170508
  6. SODIUM BICARBONATE. [Concomitant]
     Active Substance: SODIUM BICARBONATE
     Indication: MUCOSAL INFLAMMATION
     Dosage: 7 PERCENT
     Route: 048
     Dates: start: 20170503, end: 20170504
  7. SODIUM BICARBONATE. [Concomitant]
     Active Substance: SODIUM BICARBONATE
     Dosage: 5.6 PERCENT
     Route: 048
     Dates: start: 20170529, end: 20170907
  8. FUNGIZONE [Concomitant]
     Active Substance: AMPHOTERICIN B
     Indication: MUCOSAL INFLAMMATION
     Dosage: 40 PERCENT
     Route: 048
     Dates: start: 20170503, end: 20170907
  9. VENETOCLAX. [Suspect]
     Active Substance: VENETOCLAX
     Indication: ACUTE MYELOID LEUKAEMIA
     Dosage: 100 MILLIGRAM
     Route: 048
     Dates: start: 20170406, end: 20170406
  10. ZINNAT [Concomitant]
     Active Substance: CEFUROXIME AXETIL
     Route: 048
     Dates: start: 20170529, end: 20170907
  11. OFLOCET [Concomitant]
     Active Substance: OFLOXACIN
     Route: 048
     Dates: start: 20170529, end: 20170907
  12. DIPROSONE [Concomitant]
     Active Substance: BETAMETHASONE DIPROPIONATE
     Indication: DERMATITIS ALLERGIC
     Route: 062
     Dates: start: 20170411, end: 20170907
  13. OXYCONTIN [Concomitant]
     Active Substance: OXYCODONE HYDROCHLORIDE
     Indication: MUCOSAL INFLAMMATION
     Dosage: 20 MILLIGRAM
     Route: 048
     Dates: start: 20170503, end: 20170508
  14. ONDANSETRON [Concomitant]
     Active Substance: ONDANSETRON
     Indication: PROPHYLAXIS OF NAUSEA AND VOMITING
     Route: 048
     Dates: start: 20170703, end: 20170907
  15. ZINNAT [Concomitant]
     Active Substance: CEFUROXIME AXETIL
     Indication: PYREXIA
     Dosage: 1000 MILLIGRAM
     Route: 048
     Dates: start: 20170423, end: 20170503
  16. SODIUM BICARBONATE. [Concomitant]
     Active Substance: SODIUM BICARBONATE
     Indication: DENTAL DISORDER PROPHYLAXIS
     Dosage: 4.2 PERCENT
     Route: 048
     Dates: start: 20170504, end: 20170529
  17. BETADINE [Concomitant]
     Active Substance: POVIDONE-IODINE
     Indication: FOLLICULITIS
     Route: 061
     Dates: start: 201706, end: 20170907
  18. VENETOCLAX. [Suspect]
     Active Substance: VENETOCLAX
     Dosage: 200 MILLIGRAM
     Route: 048
     Dates: start: 20170407, end: 20170407
  19. ORAMORPH [Concomitant]
     Active Substance: MORPHINE SULFATE
     Indication: MUCOSAL INFLAMMATION
     Dosage: 20 MILLIGRAM
     Route: 048
     Dates: start: 20170503, end: 20170907
  20. ZELITREX [Concomitant]
     Active Substance: VALACYCLOVIR HYDROCHLORIDE
     Indication: ORAL HERPES
     Dosage: 3000 MILLIGRAM
     Route: 048
     Dates: start: 20170505, end: 20170907
  21. FRESUBIN [Concomitant]
     Active Substance: AMINO ACIDS\DEXTROSE\ELECTROLYTES NOS\SOYBEAN OIL\VITAMINS
     Indication: NUTRITIONAL SUPPLEMENTATION
     Route: 048
     Dates: start: 20170503, end: 20170907
  22. MOVICOL [Concomitant]
     Active Substance: POLYETHYLENE GLYCOL 3350\POTASSIUM CHLORIDE\SODIUM BICARBONATE\SODIUM CHLORIDE
     Dosage: 2 DOSAGE FORMS
     Route: 048
     Dates: start: 20170508, end: 20170907
  23. GLYCO THYMOLINE [Concomitant]
     Indication: DENTAL DISORDER PROPHYLAXIS
     Route: 048
     Dates: start: 20170504, end: 20170907
  24. VENETOCLAX. [Suspect]
     Active Substance: VENETOCLAX
     Dosage: 400 MILLIGRAM
     Route: 048
     Dates: start: 20170408, end: 20170902
  25. OXYCONTIN [Concomitant]
     Active Substance: OXYCODONE HYDROCHLORIDE
     Dosage: 10 MILLIGRAM
     Route: 048
     Dates: start: 20170508, end: 20170907
  26. PARACETAMOL [Concomitant]
     Active Substance: ACETAMINOPHEN
     Indication: MUCOSAL INFLAMMATION
     Route: 048
     Dates: start: 20170508, end: 20170907
  27. PARACETAMOL [Concomitant]
     Active Substance: ACETAMINOPHEN
     Indication: BONE PAIN
     Route: 048
     Dates: start: 20170329, end: 20170907

REACTIONS (1)
  - Multiple organ dysfunction syndrome [Recovered/Resolved]

NARRATIVE: CASE EVENT DATE: 20170902
